FAERS Safety Report 7072344-9 (Version None)
Quarter: 2010Q4

REPORT INFORMATION
  Report Type: 
  Country: None (occurrence: None)
  Receive Date: 20101029
  Receipt Date: 20100212
  Transmission Date: 20110411
  Serious: No
  Sender: FDA-Public Use
  Company Number: A0839433A

PATIENT
  Age: 64 Year
  Sex: Male

DRUGS (6)
  1. ADVAIR DISKUS 100/50 [Suspect]
     Dosage: 1PUFF TWICE PER DAY
     Route: 055
     Dates: start: 20091211, end: 20091218
  2. LISINOPRIL [Concomitant]
  3. ATENOLOL [Concomitant]
  4. ASPIRIN [Concomitant]
  5. MULTI-VITAMIN [Concomitant]
  6. HERBAL SUPPLEMENT [Concomitant]

REACTIONS (4)
  - DRUG INEFFECTIVE [None]
  - DYSURIA [None]
  - PROSTATIC DISORDER [None]
  - URINE FLOW DECREASED [None]
